FAERS Safety Report 8133809-1 (Version None)
Quarter: 2012Q1

REPORT INFORMATION
  Report Type: 
  Country: None (occurrence: None)
  Receive Date: 20120213
  Receipt Date: 20120213
  Transmission Date: 20120608
  Serious: Yes (Other)
  Sender: FDA-Public Use
  Company Number: None

PATIENT
  Age: 44 Year
  Sex: Male
  Weight: 71.667 kg

DRUGS (2)
  1. VIIBRYD [Suspect]
     Indication: DEPRESSION
     Dosage: 10 MG, 20 MG, 40 MG
     Route: 048
     Dates: start: 20111129, end: 20111223
  2. VIIBRYD [Suspect]
     Indication: STRESS
     Dosage: 10 MG, 20 MG, 40 MG
     Route: 048
     Dates: start: 20111129, end: 20111223

REACTIONS (2)
  - ECONOMIC PROBLEM [None]
  - PARAESTHESIA [None]
